FAERS Safety Report 6554995-0 (Version None)
Quarter: 2010Q1

REPORT INFORMATION
  Report Type: 
  Country: None (occurrence: None)
  Receive Date: 20100126
  Receipt Date: 20100126
  Transmission Date: 20100710
  Serious: Yes (Hospitalization, Disabling)
  Sender: FDA-Public Use
  Company Number: None

PATIENT
  Sex: Female
  Weight: 69.4003 kg

DRUGS (1)
  1. MIRENA [Suspect]
     Indication: CONTRACEPTION
     Dosage: IUD UNIT -1- INTRA-UTERINE
     Route: 015
     Dates: start: 20081017, end: 20100113

REACTIONS (2)
  - DEVICE DISLOCATION [None]
  - UTERINE PERFORATION [None]
